FAERS Safety Report 8318368-2 (Version None)
Quarter: 2012Q2

REPORT INFORMATION
  Report Type: 
  Country: None (occurrence: None)
  Receive Date: 20120427
  Receipt Date: 20120315
  Transmission Date: 20120825
  Serious: Yes (Death, Other)
  Sender: FDA-Public Use
  Company Number: DZ-ROCHE-782181

PATIENT
  Sex: Female

DRUGS (7)
  1. AVASTIN [Suspect]
     Dates: start: 20110723, end: 20111214
  2. ZOMETA [Suspect]
     Indication: BREAST CANCER
     Dosage: FREQUENCY: PER CURE
     Route: 065
     Dates: start: 20100923, end: 20110508
  3. DOCETAXEL [Suspect]
     Indication: BREAST CANCER
     Dosage: FREQUENCY: PER CURE
     Route: 065
     Dates: start: 20100923, end: 20110508
  4. ZOMETA [Suspect]
  5. AVASTIN [Suspect]
     Indication: BREAST CANCER
     Dosage: FREQUENCY: PER CURE
     Route: 065
     Dates: start: 20100923, end: 20110508
  6. AVASTIN [Suspect]
  7. ZOMETA [Suspect]

REACTIONS (2)
  - DISEASE PROGRESSION [None]
  - NEUTROPENIA [None]
